FAERS Safety Report 4577624-4 (Version None)
Quarter: 2005Q1

REPORT INFORMATION
  Report Type: 
  Country: None (occurrence: None)
  Receive Date: 20050208
  Receipt Date: 20050126
  Transmission Date: 20050727
  Serious: Yes (Hospitalization)
  Sender: FDA-Public Use
  Company Number: RENA-11208

PATIENT
  Age: 59 Year
  Sex: Female

DRUGS (11)
  1. RENAGEL [Suspect]
     Indication: HYPERPHOSPHATAEMIA
     Dosage: 0.5 G TID PO
     Route: 048
     Dates: start: 20040501
  2. CALCIUM (CALCIUM CARBONATE) [Concomitant]
  3. ALOSENN [Concomitant]
  4. JUSO [Concomitant]
  5. VITANEURIN (THIAMINE HYDROCHLORIDE) [Concomitant]
  6. RENIVACE [Concomitant]
  7. ZYLORIC (ALLOPURINOL) [Concomitant]
  8. LIPOVAS (SIMVASTATIN) [Concomitant]
  9. ADALAT [Concomitant]
  10. EPOGIN [Concomitant]
  11. ASCORBIC ACID [Concomitant]

REACTIONS (2)
  - ENTERITIS INFECTIOUS [None]
  - MECHANICAL ILEUS [None]
